FAERS Safety Report 9844951 (Version 1)
Quarter: 2014Q1

REPORT INFORMATION
  Report Type: Spontaneous
  Country: US (occurrence: US)
  Receive Date: 20140127
  Receipt Date: 20140127
  Transmission Date: 20141002
  Serious: No
  Sender: FDA-Public Use
  Company Number: US-MYLANLABS-2013S1018808

PATIENT
  Sex: Female

DRUGS (1)
  1. PHENYTEK CAPSULES, USP [Suspect]
     Indication: CONVULSION
     Route: 048
     Dates: start: 2005

REACTIONS (1)
  - Fatigue [Not Recovered/Not Resolved]
